FAERS Safety Report 13228045 (Version 1)
Quarter: 2017Q1

REPORT INFORMATION
  Report Type: Spontaneous
  Country: CL (occurrence: CL)
  Receive Date: 20170213
  Receipt Date: 20170213
  Transmission Date: 20170428
  Serious: Yes (Death)
  Sender: FDA-Public Use
  Company Number: CL-BAUSCH-BL-2017-003831

PATIENT
  Sex: Male

DRUGS (2)
  1. NORMIX COMPRIMIDOS RECUBIERTOS 200 MG [Suspect]
     Active Substance: RIFAXIMIN
     Indication: PRODUCT USED FOR UNKNOWN INDICATION
     Route: 048
  2. LACTULOSE. [Concomitant]
     Active Substance: LACTULOSE
     Indication: PRODUCT USED FOR UNKNOWN INDICATION

REACTIONS (1)
  - Oesophageal varices haemorrhage [Fatal]
